FAERS Safety Report 4633949-5 (Version None)
Quarter: 2005Q2

REPORT INFORMATION
  Report Type: 
  Country: None (occurrence: None)
  Receive Date: 20050407
  Receipt Date: 20050322
  Transmission Date: 20051028
  Serious: Yes (Hospitalization)
  Sender: FDA-Public Use
  Company Number: 2005-BP-04877YA

PATIENT
  Age: 56 Year
  Sex: Male

DRUGS (2)
  1. SECOTEX                              (TAMSULOSIN HYDROCHLORIDE) [Suspect]
     Indication: BENIGN PROSTATIC HYPERPLASIA
     Dosage: 0.4 MG
     Route: 048
     Dates: start: 20031007, end: 20031022
  2. SECOTEX                              (TAMSULOSIN HYDROCHLORIDE) [Suspect]
     Indication: OBSTRUCTION
     Dosage: 0.4 MG
     Route: 048
     Dates: start: 20031007, end: 20031022

REACTIONS (1)
  - DRUG INEFFECTIVE [None]
